FAERS Safety Report 7096304-7 (Version None)
Quarter: 2010Q4

REPORT INFORMATION
  Report Type: 
  Country: None (occurrence: None)
  Receive Date: 20101111
  Receipt Date: 20090622
  Transmission Date: 20110411
  Serious: No
  Sender: FDA-Public Use
  Company Number: US-KINGPHARMUSA00001-K200900748

PATIENT
  Sex: Female

DRUGS (1)
  1. LEVOXYL [Suspect]
     Dosage: 125 MCG, UNK

REACTIONS (4)
  - ALOPECIA [None]
  - ASTHENIA [None]
  - DRY SKIN [None]
  - MENSTRUATION IRREGULAR [None]
